FAERS Safety Report 12182855 (Version 5)
Quarter: 2019Q1

REPORT INFORMATION
  Report Type: Spontaneous
  Country: US (occurrence: US)
  Receive Date: 20160316
  Receipt Date: 20190214
  Transmission Date: 20190417
  Serious: Yes (Hospitalization)
  Sender: FDA-Public Use
  Company Number: US-ASTRAZENECA-2016SE26016

PATIENT
  Age: 24846 Day
  Sex: Female

DRUGS (10)
  1. BIOTIN [Concomitant]
     Active Substance: BIOTIN
     Indication: ILL-DEFINED DISORDER
     Dates: start: 1999
  2. BYDUREON BCISE [Suspect]
     Active Substance: EXENATIDE
     Indication: TYPE 2 DIABETES MELLITUS
     Route: 065
     Dates: start: 2018
  3. ASPIRIN. [Concomitant]
     Active Substance: ASPIRIN
  4. VITAMINS NOS [Concomitant]
     Active Substance: VITAMINS
     Indication: MACULAR DEGENERATION
  5. VITAMINS NOS [Concomitant]
     Active Substance: VITAMINS
  6. BYDUREON [Suspect]
     Active Substance: EXENATIDE
     Indication: TYPE 2 DIABETES MELLITUS
     Route: 058
  7. PLAVIX [Concomitant]
     Active Substance: CLOPIDOGREL BISULFATE
  8. PILL FOR HIGH CHOLESTEROL [Concomitant]
     Indication: BLOOD CHOLESTEROL INCREASED
  9. VITAMIN D [Concomitant]
     Active Substance: CHOLECALCIFEROL
  10. GLIMEPIRIDE. [Concomitant]
     Active Substance: GLIMEPIRIDE
     Indication: TYPE 2 DIABETES MELLITUS

REACTIONS (6)
  - Skin disorder [Unknown]
  - Product dose omission [Unknown]
  - Thyroid mass [Not Recovered/Not Resolved]
  - Thyroid cyst [Not Recovered/Not Resolved]
  - Facial paralysis [Recovering/Resolving]
  - Device leakage [Unknown]

NARRATIVE: CASE EVENT DATE: 20160226
